FAERS Safety Report 9207754 (Version 1)
Quarter: 2013Q2

REPORT INFORMATION
  Report Type: Report from Study
  Country: BR (occurrence: BR)
  Receive Date: 20130403
  Receipt Date: 20130403
  Transmission Date: 20140414
  Serious: Yes (Other)
  Sender: FDA-Public Use
  Company Number: BR-ABBOTT-12P-020-1014973-00

PATIENT
  Age: 34 Year
  Sex: Female
  Weight: 83 kg

DRUGS (3)
  1. HUMIRA [Suspect]
     Indication: CROHN^S DISEASE
     Dosage: WEEK 0
     Route: 058
     Dates: start: 20120726
  2. HUMIRA [Suspect]
     Dosage: WEEK 2
     Route: 058
  3. HUMIRA [Suspect]
     Route: 058
     Dates: end: 201209

REACTIONS (7)
  - Anal abscess [Unknown]
  - Drug ineffective [Recovered/Resolved]
  - Blister [Not Recovered/Not Resolved]
  - Pruritus [Unknown]
  - Hypersensitivity [Unknown]
  - Proctalgia [Unknown]
  - Anal haemorrhage [Unknown]
